FAERS Safety Report 19593190 (Version 1)
Quarter: 2021Q3

REPORT INFORMATION
  Report Type: Spontaneous
  Country: US (occurrence: US)
  Receive Date: 20210721
  Receipt Date: 20210721
  Transmission Date: 20211014
  Serious: Yes (Hospitalization)
  Sender: FDA-Public Use
  Company Number: None

PATIENT
  Age: 48 Year
  Sex: Male

DRUGS (7)
  1. DOXYCYCL HYC [Concomitant]
     Active Substance: DOXYCYCLINE HYCLATE
  2. PROCHLORPER [Concomitant]
  3. OXYCODONE [Concomitant]
     Active Substance: OXYCODONE
  4. PREVYMIS [Suspect]
     Active Substance: LETERMOVIR
     Indication: BONE MARROW TRANSPLANT
     Route: 048
     Dates: start: 20210714
  5. FLUCONAZOLE. [Concomitant]
     Active Substance: FLUCONAZOLE
  6. PANTOPRAZOLE [Concomitant]
     Active Substance: PANTOPRAZOLE
  7. LEVOFLOXACIN. [Concomitant]
     Active Substance: LEVOFLOXACIN

REACTIONS (1)
  - Hospitalisation [None]

NARRATIVE: CASE EVENT DATE: 20210720
